FAERS Safety Report 4688996-4 (Version None)
Quarter: 2005Q2

REPORT INFORMATION
  Report Type: 
  Country: None (occurrence: None)
  Receive Date: 20050613
  Receipt Date: 20050421
  Transmission Date: 20051028
  Serious: Yes (Other)
  Sender: FDA-Public Use
  Company Number: US-MERCK-0504USA03889

PATIENT
  Age: 77 Year
  Sex: Male

DRUGS (5)
  1. VIOXX [Suspect]
     Route: 048
     Dates: start: 20001201, end: 20040101
  2. LIPITOR [Concomitant]
     Route: 065
  3. KETOCONAZOLE [Concomitant]
     Route: 065
  4. VIAGRA [Concomitant]
     Route: 065
  5. CASODEX [Concomitant]
     Route: 065

REACTIONS (1)
  - MYOCARDIAL INFARCTION [None]
